FAERS Safety Report 5133934-3 (Version None)
Quarter: 2006Q4

REPORT INFORMATION
  Report Type: 
  Country: None (occurrence: None)
  Receive Date: 20061019
  Receipt Date: 20061010
  Transmission Date: 20070319
  Serious: Yes (Hospitalization)
  Sender: FDA-Public Use
  Company Number: B0442253A

PATIENT
  Age: 35 Year
  Sex: Female

DRUGS (3)
  1. LITHIUM CARBONATE [Suspect]
     Indication: BIPOLAR DISORDER
  2. RISPERIDONE [Concomitant]
  3. DANTROLENE SODIUM [Concomitant]

REACTIONS (30)
  - ANTIPSYCHOTIC DRUG LEVEL ABOVE THERAPEUTIC [None]
  - AREFLEXIA [None]
  - BLOOD CREATININE INCREASED [None]
  - BRAIN DAMAGE [None]
  - CEREBELLAR SYNDROME [None]
  - CLONUS [None]
  - COMA [None]
  - DEPRESSED LEVEL OF CONSCIOUSNESS [None]
  - DIARRHOEA [None]
  - DISORIENTATION [None]
  - DRUG TOXICITY [None]
  - DYSARTHRIA [None]
  - EXTENSOR PLANTAR RESPONSE [None]
  - EYE MOVEMENT DISORDER [None]
  - HAEMODIALYSIS [None]
  - HAEMODYNAMIC INSTABILITY [None]
  - HYPERHIDROSIS [None]
  - HYPERREFLEXIA [None]
  - HYPERTHERMIA [None]
  - HYPERTONIA [None]
  - MULTI-ORGAN DISORDER [None]
  - MUSCLE RIGIDITY [None]
  - NOSOCOMIAL INFECTION [None]
  - RHABDOMYOLYSIS [None]
  - SOMNOLENCE [None]
  - SUICIDE ATTEMPT [None]
  - TACHYCARDIA [None]
  - TACHYPNOEA [None]
  - TREMOR [None]
  - VOMITING [None]
